FAERS Safety Report 15452005 (Version 1)
Quarter: 2018Q4

REPORT INFORMATION
  Report Type: Spontaneous
  Country: CA (occurrence: CA)
  Receive Date: 20181001
  Receipt Date: 20181001
  Transmission Date: 20190204
  Serious: Yes (Life-Threatening)
  Sender: FDA-Public Use
  Company Number: CA-PFIZER INC-2018393676

PATIENT
  Age: 44 Year
  Sex: Female
  Weight: 86 kg

DRUGS (2)
  1. ERYTHROMYCIN. [Suspect]
     Active Substance: ERYTHROMYCIN
     Dosage: UNK
  2. TUSSIONEX [BROMHEXINE] [Suspect]
     Active Substance: BROMHEXINE
     Dosage: 5 ML, SINGLE

REACTIONS (4)
  - Respiratory rate decreased [Unknown]
  - Overdose [Unknown]
  - Respiratory depression [Unknown]
  - Depressed level of consciousness [Unknown]
